FAERS Safety Report 4442784-2 (Version None)
Quarter: 2004Q3

REPORT INFORMATION
  Report Type: 
  Country: None (occurrence: None)
  Receive Date: 20040903
  Receipt Date: 20040610
  Transmission Date: 20050211
  Serious: Yes (Other)
  Sender: FDA-Public Use
  Company Number: 2004UW12077

PATIENT
  Age: 58 Year
  Sex: Female

DRUGS (4)
  1. CRESTOR [Suspect]
     Indication: BLOOD CHOLESTEROL INCREASED
     Dosage: 10 MG PO
     Route: 048
  2. TEVETEN [Concomitant]
  3. ZETIA [Concomitant]
  4. PAXIL [Concomitant]

REACTIONS (2)
  - HYPOTENSION [None]
  - MYALGIA [None]
